FAERS Safety Report 18042970 (Version 1)
Quarter: 2020Q3

REPORT INFORMATION
  Report Type: Spontaneous
  Country: US (occurrence: US)
  Receive Date: 20200716
  Receipt Date: 20200716
  Transmission Date: 20201103
  Serious: No
  Sender: FDA-Public Use
  Company Number: None

PATIENT
  Age: 62 Year
  Sex: Male
  Weight: 103.69 kg

DRUGS (2)
  1. PREGABALIN (PREGABALIN 75MG CAP, ORAL) [Suspect]
     Active Substance: PREGABALIN
     Indication: PAIN
     Route: 048
     Dates: start: 20180802, end: 20180921
  2. PREGABALIN (PREGABALIN 75MG CAP, ORAL) [Suspect]
     Active Substance: PREGABALIN
     Indication: NEURALGIA
     Route: 048
     Dates: start: 20180802, end: 20180921

REACTIONS (3)
  - Sedation [None]
  - Lethargy [None]
  - Depression [None]

NARRATIVE: CASE EVENT DATE: 20181107
